FAERS Safety Report 8603253-9 (Version None)
Quarter: 2012Q3

REPORT INFORMATION
  Report Type: 
  Country: None (occurrence: None)
  Receive Date: 20120817
  Receipt Date: 20120808
  Transmission Date: 20120928
  Serious: Yes (Life-Threatening, Hospitalization)
  Sender: FDA-Public Use
  Company Number: US-ACTELION-A-NJ2012-63577

PATIENT
  Age: 77 Year
  Sex: Female

DRUGS (4)
  1. REVATIO [Concomitant]
  2. TRACLEER [Suspect]
     Indication: PULMONARY ARTERIAL HYPERTENSION
     Dosage: UNK
     Route: 048
  3. REMODULIN [Concomitant]
  4. COUMADIN [Concomitant]

REACTIONS (5)
  - PYREXIA [None]
  - PNEUMONIA [None]
  - DEVICE RELATED INFECTION [None]
  - DEVICE LEAKAGE [None]
  - THROMBOSIS IN DEVICE [None]
